FAERS Safety Report 8297828-7 (Version None)
Quarter: 2012Q2

REPORT INFORMATION
  Report Type: 
  Country: None (occurrence: None)
  Receive Date: 20120419
  Receipt Date: 20120409
  Transmission Date: 20120825
  Serious: Yes (Other)
  Sender: FDA-Public Use
  Company Number: JP-VALEANT-2012VX001706

PATIENT

DRUGS (4)
  1. DOCETAXEL [Suspect]
     Route: 042
  2. CISPLATIN [Suspect]
     Route: 042
  3. ANTIBIOTICS [Concomitant]
     Indication: PROPHYLAXIS
     Route: 065
  4. FLUOROURACIL [Suspect]
     Route: 042

REACTIONS (1)
  - INFECTION [None]
